FAERS Safety Report 7875327-1 (Version None)
Quarter: 2011Q4

REPORT INFORMATION
  Report Type: 
  Country: None (occurrence: None)
  Receive Date: 20111031
  Receipt Date: 20111027
  Transmission Date: 20120403
  Serious: Yes (Life-Threatening, Hospitalization)
  Sender: FDA-Public Use
  Company Number: TR-BAYER-2011-105110

PATIENT
  Age: 47 Year
  Sex: Female

DRUGS (6)
  1. METPAMID [Concomitant]
     Dosage: UNK
  2. AVELOX [Suspect]
     Dosage: UNK
     Route: 048
     Dates: start: 20111025
  3. XYZAL [Concomitant]
     Dosage: UNK
  4. PREDNOL [METHYLPREDNISOLONE] [Concomitant]
     Dosage: UNK
  5. LANSOR [Concomitant]
     Dosage: UNK
  6. SCOPOLAMINE [Concomitant]
     Dosage: UNK

REACTIONS (4)
  - CONFUSIONAL STATE [None]
  - HEART RATE DECREASED [None]
  - BRADYCARDIA [None]
  - DYSPNOEA [None]
